FAERS Safety Report 9182627 (Version 1)
Quarter: 2013Q1

REPORT INFORMATION
  Report Type: Spontaneous
  Country: US (occurrence: US)
  Receive Date: 20130322
  Receipt Date: 20130322
  Transmission Date: 20140127
  Serious: No
  Sender: FDA-Public Use
  Company Number: US-BRISTOL-MYERS SQUIBB COMPANY-16853640

PATIENT
  Age: 48 Year
  Sex: Female
  Weight: 61.22 kg

DRUGS (1)
  1. ERBITUX [Suspect]
     Indication: NEOPLASM MALIGNANT
     Dates: start: 20120727

REACTIONS (8)
  - Skin exfoliation [Unknown]
  - Chapped lips [Unknown]
  - Eyelid disorder [Unknown]
  - Constipation [Unknown]
  - Fatigue [Unknown]
  - Decreased appetite [Unknown]
  - Pruritus [Unknown]
  - Weight decreased [Unknown]
